FAERS Safety Report 5088997-0 (Version None)
Quarter: 2006Q3

REPORT INFORMATION
  Report Type: 
  Country: None (occurrence: None)
  Receive Date: 20060825
  Receipt Date: 20060822
  Transmission Date: 20061208
  Serious: Yes (Hospitalization, Disabling)
  Sender: FDA-Public Use
  Company Number: PHRM2006FR02368

PATIENT
  Sex: Female
  Weight: 58 kg

DRUGS (8)
  1. ZOMETA [Suspect]
     Indication: METASTASES TO BONE
     Dosage: 4 MG, QMO
     Route: 042
     Dates: start: 20021001, end: 20050626
  2. AROMASIN [Concomitant]
  3. XELODA [Concomitant]
  4. FOLFOX-4 [Concomitant]
  5. TAMOXIFEN CITRATE [Concomitant]
  6. HERCEPTIN [Concomitant]
  7. TAXOTERE [Concomitant]
  8. ARIMIDEX [Concomitant]

REACTIONS (4)
  - HYPERBARIC OXYGEN THERAPY [None]
  - MOUTH ULCERATION [None]
  - OSTEONECROSIS [None]
  - SURGERY [None]
